FAERS Safety Report 7118342-8 (Version None)
Quarter: 2010Q4

REPORT INFORMATION
  Report Type: 
  Country: None (occurrence: None)
  Receive Date: 20101123
  Receipt Date: 20101118
  Transmission Date: 20110411
  Serious: Yes (Life-Threatening, Hospitalization)
  Sender: FDA-Public Use
  Company Number: PHHY2010DE78600

PATIENT
  Sex: Male

DRUGS (2)
  1. RASILEZ HCT [Suspect]
     Indication: HYPERTENSION
     Dosage: 150/12.5 MG, 1 DF QD
     Route: 048
     Dates: start: 20100122, end: 20100219
  2. RASILEZ HCT [Suspect]
     Dosage: 300/12.5 MG, 1 DF QD
     Route: 048
     Dates: start: 20100219

REACTIONS (3)
  - BRAIN INJURY [None]
  - CORONARY ARTERY DISEASE [None]
  - SYNCOPE [None]
